FAERS Safety Report 11768270 (Version 2)
Quarter: 2016Q2

REPORT INFORMATION
  Report Type: Spontaneous
  Country: US (occurrence: US)
  Receive Date: 20151123
  Receipt Date: 20160510
  Transmission Date: 20160815
  Serious: Yes (Other)
  Sender: FDA-Public Use
  Company Number: US-MDT-ADR-2015-02207

PATIENT
  Age: 17 Year
  Sex: Female

DRUGS (1)
  1. LIORESAL [Suspect]
     Active Substance: BACLOFEN
     Dosage: 250.3 MCG/DAY
     Route: 037

REACTIONS (3)
  - Cerebrospinal fluid leakage [Recovered/Resolved]
  - Therapeutic response decreased [Recovered/Resolved]
  - Implant site extravasation [Recovered/Resolved]
